FAERS Safety Report 24083858 (Version 3)
Quarter: 2024Q3

REPORT INFORMATION
  Report Type: Spontaneous
  Country: US (occurrence: US)
  Receive Date: 20240712
  Receipt Date: 20240912
  Transmission Date: 20241016
  Serious: Yes (Death)
  Sender: PFIZER
  Company Number: US-PFIZER INC-202400198009

PATIENT
  Age: 78 Year
  Sex: Male

DRUGS (3)
  1. GENOTROPIN [Suspect]
     Active Substance: SOMATROPIN
     Indication: Hypopituitarism
     Dosage: 0.2 MG/DAY 7 DAYS/WEEK
     Dates: start: 1994
  2. GENOTROPIN [Suspect]
     Active Substance: SOMATROPIN
     Indication: Growth hormone deficiency
  3. GENOTROPIN [Suspect]
     Active Substance: SOMATROPIN
     Indication: Hypopituitarism

REACTIONS (1)
  - Death [Fatal]

NARRATIVE: CASE EVENT DATE: 20240705
